FAERS Safety Report 18559692 (Version 1)
Quarter: 2020Q4

REPORT INFORMATION
  Report Type: Spontaneous
  Country: US (occurrence: US)
  Receive Date: 20201129
  Receipt Date: 20201129
  Transmission Date: 20210114
  Serious: Yes (Disabling, Other)
  Sender: FDA-Public Use
  Company Number: None

PATIENT
  Age: 58 Year
  Sex: Female
  Weight: 67.5 kg

DRUGS (10)
  1. VYVANSE [Concomitant]
     Active Substance: LISDEXAMFETAMINE DIMESYLATE
  2. CELEBREX [Concomitant]
     Active Substance: CELECOXIB
  3. MULTIVITAMIN [Concomitant]
     Active Substance: VITAMINS
  4. AMLODIPINE [Concomitant]
     Active Substance: AMLODIPINE BESYLATE
  5. CENTRIM SILVER [Concomitant]
  6. LYMPHAZURIN [Suspect]
     Active Substance: ISOSULFAN BLUE
     Indication: IMAGING PROCEDURE
     Route: 058
     Dates: start: 20160210, end: 20160211
  7. RAMPIRIL [Concomitant]
     Active Substance: RAMIPRIL
  8. TYLENOL [Concomitant]
     Active Substance: ACETAMINOPHEN
  9. ATORVASTATIN [Concomitant]
     Active Substance: ATORVASTATIN
  10. NEXIUM [Concomitant]
     Active Substance: ESOMEPRAZOLE MAGNESIUM

REACTIONS (5)
  - Angioedema [None]
  - Post procedural complication [None]
  - Procedural pain [None]
  - Scar [None]
  - Lymph node pain [None]

NARRATIVE: CASE EVENT DATE: 20160211
